FAERS Safety Report 4886603-9 (Version None)
Quarter: 2006Q1

REPORT INFORMATION
  Report Type: 
  Country: None (occurrence: None)
  Receive Date: 20060119
  Receipt Date: 20060104
  Transmission Date: 20060701
  Serious: Yes (Other)
  Sender: FDA-Public Use
  Company Number: OPD-2006-001

PATIENT
  Age: 27 Year
  Sex: Female

DRUGS (1)
  1. PREDNISOLONE SODIUM PHOSPHATE [Suspect]
     Indication: GLOMERULOSCLEROSIS
     Dosage: 30MG/DAY, ORALLY AS A STARTING DOSE, THEN 5 MG/DAY, ORALLY AS A MAINTENANCE DOSE
     Dates: start: 20000601, end: 20030701

REACTIONS (17)
  - ANAEMIA [None]
  - ANGIOGRAM ABNORMAL [None]
  - CONDITION AGGRAVATED [None]
  - ELSCHNIG'S BODIES [None]
  - EYE DISORDER [None]
  - HAEMODIALYSIS [None]
  - HYPONATRAEMIA [None]
  - HYPOPERFUSION [None]
  - MALIGNANT HYPERTENSION [None]
  - PAPILLOEDEMA [None]
  - RENAL FAILURE [None]
  - RETINAL DETACHMENT [None]
  - RETINAL EXUDATES [None]
  - RETINAL OEDEMA [None]
  - VARICOSE VEIN [None]
  - VISUAL ACUITY REDUCED [None]
  - VISUAL FIELD DEFECT [None]
